FAERS Safety Report 5353472-2 (Version None)
Quarter: 2007Q2

REPORT INFORMATION
  Report Type: 
  Country: None (occurrence: None)
  Receive Date: 20070612
  Receipt Date: 20070607
  Transmission Date: 20071010
  Serious: Yes (Other)
  Sender: FDA-Public Use
  Company Number: PHNU2007DE02034

PATIENT

DRUGS (1)
  1. ZOMETA [Suspect]

REACTIONS (2)
  - BONE LESION [None]
  - OSTEONECROSIS [None]
